FAERS Safety Report 6179812-2 (Version None)
Quarter: 2009Q2

REPORT INFORMATION
  Report Type: 
  Country: None (occurrence: None)
  Receive Date: 20090505
  Receipt Date: 20090504
  Transmission Date: 20091009
  Serious: Yes (Hospitalization)
  Sender: FDA-Public Use
  Company Number: US-B.I. PHARMACEUTICALS,INC./RIDGEFIELD-2009-BP-03018BP

PATIENT
  Sex: Male

DRUGS (9)
  1. SPIRIVA [Suspect]
     Indication: CHRONIC OBSTRUCTIVE PULMONARY DISEASE
     Dosage: 18MCG
     Route: 055
     Dates: start: 20071201
  2. CARDIAC MEDICATIONS [Concomitant]
  3. SIMVASTATIN [Concomitant]
  4. ALBUTEROL [Concomitant]
  5. ASPIRIN [Concomitant]
  6. METOPROLOL TARTRATE [Concomitant]
  7. AMIODARONE HCL [Concomitant]
  8. PLAVIX [Concomitant]
  9. B-12 SHOT [Concomitant]
     Route: 030

REACTIONS (3)
  - CORONARY ARTERY DISEASE [None]
  - OROPHARYNGEAL PAIN [None]
  - THROAT IRRITATION [None]
